FAERS Safety Report 10181729 (Version 1)
Quarter: 2014Q2

REPORT INFORMATION
  Report Type: Spontaneous
  Country: US (occurrence: US)
  Receive Date: 20140519
  Receipt Date: 20140519
  Transmission Date: 20141212
  Serious: No
  Sender: FDA-Public Use
  Company Number: US-BANPHARM-20131696

PATIENT
  Age: 84 Year
  Sex: Female
  Weight: 61.24 kg

DRUGS (1)
  1. IBUPROFEN CAPSULES 200 MG [Suspect]
     Indication: PAIN
     Dosage: 2 DF, QD,
     Route: 048
     Dates: start: 20130829, end: 20130901

REACTIONS (2)
  - Somnolence [Recovered/Resolved]
  - Fatigue [Not Recovered/Not Resolved]
